FAERS Safety Report 20552962 (Version 1)
Quarter: 2022Q1

REPORT INFORMATION
  Report Type: Spontaneous
  Country: NL (occurrence: NL)
  Receive Date: 20220304
  Receipt Date: 20220304
  Transmission Date: 20220424
  Serious: Yes (Death, Other)
  Sender: FDA-Public Use
  Company Number: NL-AMGEN-NLDSP2022005455

PATIENT
  Age: 66 Year
  Sex: Male

DRUGS (3)
  1. ADALIMUMAB [Suspect]
     Active Substance: ADALIMUMAB
     Indication: Polyarthritis
     Dosage: 40 MILLIGRAM, BIWEEKLY (40 MILLIGRAM, Q2WK)
     Route: 058
  2. METHOTREXATE [Concomitant]
     Active Substance: METHOTREXATE
     Dosage: UNK, UNK, Q2W
     Route: 065
  3. DAPSONE [Concomitant]
     Active Substance: DAPSONE
     Dosage: 100 MILLIGRAM, QD

REACTIONS (5)
  - Cardiovascular disorder [Fatal]
  - Polyarthritis [Fatal]
  - Skin disorder [Fatal]
  - Pneumocystis jirovecii pneumonia [Fatal]
  - Therapy partial responder [Fatal]

NARRATIVE: CASE EVENT DATE: 20190101
